FAERS Safety Report 19139322 (Version 1)
Quarter: 2021Q2

REPORT INFORMATION
  Report Type: Spontaneous
  Country: US (occurrence: US)
  Receive Date: 20210415
  Receipt Date: 20210415
  Transmission Date: 20210717
  Serious: No
  Sender: FDA-Public Use
  Company Number: None

PATIENT
  Age: 58 Year
  Sex: Female
  Weight: 68.4 kg

DRUGS (3)
  1. SOLIFENACIN [Suspect]
     Active Substance: SOLIFENACIN
     Indication: HYPERTONIC BLADDER
     Route: 048
     Dates: start: 20190501, end: 20190801
  2. SOLIFENACIN [Concomitant]
     Active Substance: SOLIFENACIN
     Dates: start: 20190501, end: 20190801
  3. SOLIFENACIN [Suspect]
     Active Substance: SOLIFENACIN
     Indication: HYPERTONIC BLADDER
     Route: 048
     Dates: start: 20190501, end: 20190801

REACTIONS (5)
  - Pollakiuria [None]
  - Anxiety [None]
  - Bladder pain [None]
  - Frustration tolerance decreased [None]
  - Product substitution issue [None]

NARRATIVE: CASE EVENT DATE: 20190501
